FAERS Safety Report 14979190 (Version 1)
Quarter: 2018Q2

REPORT INFORMATION
  Report Type: Spontaneous
  Country: SE (occurrence: SE)
  Receive Date: 20180606
  Receipt Date: 20180606
  Transmission Date: 20180711
  Serious: Yes (Other)
  Sender: FDA-Public Use
  Company Number: SE-PFIZER INC-2018230002

PATIENT
  Age: 20 Year
  Sex: Female

DRUGS (3)
  1. SERTRALINE [Concomitant]
     Active Substance: SERTRALINE HYDROCHLORIDE
     Dosage: UNK
  2. DALACIN [Suspect]
     Active Substance: CLINDAMYCIN
     Indication: ANTIBIOTIC PROPHYLAXIS
     Dosage: 900 MG, DAILY
     Route: 048
     Dates: start: 20171221, end: 20171221
  3. ZYRONA [Concomitant]
     Dosage: UNK

REACTIONS (3)
  - Pyrexia [Recovered/Resolved]
  - Pruritus [Unknown]
  - Papule [Unknown]

NARRATIVE: CASE EVENT DATE: 20171221
